FAERS Safety Report 8131727-6 (Version None)
Quarter: 2012Q1

REPORT INFORMATION
  Report Type: 
  Country: None (occurrence: None)
  Receive Date: 20120208
  Receipt Date: 20041122
  Transmission Date: 20120608
  Serious: No
  Sender: FDA-Public Use
  Company Number: HUMI20120001

PATIENT
  Age: 23 Year
  Sex: Female

DRUGS (12)
  1. GUAIFENESIN [Suspect]
     Indication: RESPIRATORY TRACT INFECTION
     Dosage: 1 OR 2 TABLETS TWICE DAILY, ORAL
     Route: 048
     Dates: start: 20041119, end: 20041119
  2. ZANAFLEX (TIZANIDINE HYDROCHLORIDE) (UNKNOWN) (TIZANIDINE HYDROCHLORID [Concomitant]
  3. ZYRTEC (CETIRIZINE HYCHLORIDE) (UNKNOWN) (CETIRIZINE HYDROCHLORIDE) [Concomitant]
  4. GABITRIL (TIAGABINE HYDROCHLORIDE) (UNKNOWN) (TIAGABAINE HYDROCHLORIDE [Concomitant]
  5. NIOTRIPTYLINE (NORTRIPTYLINE) (UNKNOWN) (NORTRIPTYLINE) [Concomitant]
  6. TEMAZEPAM (TEMAZEPAM) (UNKNOWN) (TEMAZEPAM) [Concomitant]
  7. DEPO-PROVERA (MEDROXYPROGESTERONE ACETATE) (UNKNOWN) (MEDROXYPROGESTER [Concomitant]
  8. ATENOLOL (ATENOLOL) (UNKNOWN) (ATENOLOL) [Concomitant]
  9. LEXAPRO (ESCITALOPRAM OXALATE) (UNKNWON) (ESCITALOPRAM OXALATE) [Concomitant]
  10. TEMAZEPAM (TEMAZEPAM) (UNKNOWN) (TEMAZEPAM) [Concomitant]
  11. OXYCODONE (OXYCODONE) (UNKNOWN) (OXYCODONE) [Concomitant]
  12. LEVAQUIN (LEVOFLOXACIN) (UNKNOWN) (LEVOFLOXACIN) [Concomitant]

REACTIONS (2)
  - DYSTONIA [None]
  - UNRESPONSIVE TO STIMULI [None]
